FAERS Safety Report 12072512 (Version 1)
Quarter: 2016Q1

REPORT INFORMATION
  Report Type: Spontaneous
  Country: GB (occurrence: GB)
  Receive Date: 20160212
  Receipt Date: 20160212
  Transmission Date: 20160526
  Serious: Yes (Life-Threatening, Hospitalization)
  Sender: FDA-Public Use
  Company Number: GB-WATSON-2016-02092

PATIENT
  Age: 60 Year
  Sex: Male
  Weight: 96 kg

DRUGS (1)
  1. NAPROXEN (UNKNOWN) [Suspect]
     Active Substance: NAPROXEN
     Indication: ANKYLOSING SPONDYLITIS
     Dosage: UNK
     Route: 048

REACTIONS (1)
  - Diverticulitis [Unknown]
